FAERS Safety Report 10141647 (Version 1)
Quarter: 2014Q2

REPORT INFORMATION
  Report Type: Spontaneous
  Country: FR (occurrence: FR)
  Receive Date: 20140429
  Receipt Date: 20140429
  Transmission Date: 20141212
  Serious: Yes (Other)
  Sender: FDA-Public Use
  Company Number: FR-ACTAVIS-2014-09071

PATIENT
  Sex: Female

DRUGS (1)
  1. DOCETAXEL (UNKNOWN) [Suspect]
     Indication: BREAST CANCER
     Dosage: 100 MG/M2, UNKNOWN
     Route: 065
     Dates: start: 201009, end: 201012

REACTIONS (1)
  - Palmar-plantar erythrodysaesthesia syndrome [Unknown]
